FAERS Safety Report 9827904 (Version 1)
Quarter: 2014Q1

REPORT INFORMATION
  Report Type: Other
  Country: US (occurrence: US)
  Receive Date: 20140117
  Receipt Date: 20140117
  Transmission Date: 20141002
  Serious: Yes (Death)
  Sender: FDA-Public Use
  Company Number: US-LEHIGH_VALLEY-USA-POI0580201400061

PATIENT
  Age: 24 Year
  Sex: Female

DRUGS (4)
  1. OXYCODONE HCL CAPSULES [Suspect]
     Dates: end: 2012
  2. SKELETAL MUSCLE RELAXANT [Suspect]
     Dates: end: 2012
  3. ALPRAZOLAM [Suspect]
     Dates: end: 2012
  4. DIPHENHYDRAMINE [Suspect]
     Dates: end: 2012

REACTIONS (1)
  - Toxicity to various agents [None]
